FAERS Safety Report 6749065-2 (Version None)
Quarter: 2010Q2

REPORT INFORMATION
  Report Type: 
  Country: None (occurrence: None)
  Receive Date: 20100601
  Receipt Date: 20100518
  Transmission Date: 20101027
  Serious: Yes (Disabling, Other)
  Sender: FDA-Public Use
  Company Number: BE-GENZYME-CLOF-1000981

PATIENT
  Sex: Female
  Weight: 54 kg

DRUGS (4)
  1. EVOLTRA [Suspect]
     Indication: ACUTE MYELOID LEUKAEMIA
     Dosage: 40 MG/M2, QDX5
     Route: 042
     Dates: start: 20100426, end: 20100430
  2. FLUDARA [Suspect]
     Indication: ACUTE MYELOID LEUKAEMIA
     Dosage: 30 MG/M2, UNK
     Route: 065
     Dates: start: 20100508, end: 20100511
  3. CYTARABINE [Suspect]
     Indication: ACUTE MYELOID LEUKAEMIA
     Dosage: 1 G/M2, UNK
     Route: 065
     Dates: start: 20100423, end: 20100430
  4. BUSULFEX [Suspect]
     Indication: ACUTE MYELOID LEUKAEMIA
     Dosage: 2 MG/KG, UNK
     Route: 065
     Dates: start: 20100509, end: 20100510

REACTIONS (9)
  - CHOLESTASIS [None]
  - ENCEPHALOPATHY [None]
  - ENTEROBACTER BACTERAEMIA [None]
  - ENTEROCOCCAL BACTERAEMIA [None]
  - HYPERBILIRUBINAEMIA [None]
  - PALMAR-PLANTAR ERYTHRODYSAESTHESIA SYNDROME [None]
  - PARAPLEGIA [None]
  - PERIPHERAL MOTOR NEUROPATHY [None]
  - PERIPHERAL SENSORY NEUROPATHY [None]
